FAERS Safety Report 5101003-4 (Version None)
Quarter: 2006Q3

REPORT INFORMATION
  Report Type: 
  Country: None (occurrence: None)
  Receive Date: 20060731
  Receipt Date: 20060620
  Transmission Date: 20061208
  Serious: No
  Sender: FDA-Public Use
  Company Number: 2006PV016066

PATIENT
  Age: 64 Year
  Sex: Female
  Weight: 107.9561 kg

DRUGS (8)
  1. BYETTA [Suspect]
     Indication: DIABETES MELLITUS NON-INSULIN-DEPENDENT
     Dosage: SEE IMAGE
     Route: 058
     Dates: start: 20060416, end: 20060615
  2. BYETTA [Suspect]
     Indication: DIABETES MELLITUS NON-INSULIN-DEPENDENT
     Dosage: SEE IMAGE
     Route: 058
     Dates: start: 20060616
  3. METFORMIN HCL [Concomitant]
  4. AVANDIA [Concomitant]
  5. LIPITOR [Concomitant]
  6. AMITRIPTYLINE HCL [Concomitant]
  7. KLOR-CON [Concomitant]
  8. FUROSEMIDE [Concomitant]

REACTIONS (4)
  - DYSGEUSIA [None]
  - NAUSEA [None]
  - VOMITING [None]
  - WEIGHT DECREASED [None]
